FAERS Safety Report 17302705 (Version 1)
Quarter: 2020Q1

REPORT INFORMATION
  Report Type: Report from Study
  Country: CA (occurrence: CA)
  Receive Date: 20200122
  Receipt Date: 20200122
  Transmission Date: 20200409
  Serious: Yes (Hospitalization, Other)
  Sender: FDA-Public Use
  Company Number: CA-TEVA-2020-CA-1172767

PATIENT
  Age: 19 Year
  Sex: Female

DRUGS (3)
  1. MAGNESIUM [Suspect]
     Active Substance: MAGNESIUM
     Indication: MIGRAINE
     Route: 065
  2. VENLAFAXINE [Suspect]
     Active Substance: VENLAFAXINE HYDROCHLORIDE
     Indication: MIGRAINE
     Route: 065
  3. PROPRANOLOL [Suspect]
     Active Substance: PROPRANOLOL HYDROCHLORIDE
     Indication: MIGRAINE
     Route: 065

REACTIONS (8)
  - Underweight [Unknown]
  - Dehydration [Unknown]
  - Drug ineffective for unapproved indication [Unknown]
  - Loss of consciousness [Unknown]
  - Migraine [Unknown]
  - Vomiting [Unknown]
  - Decreased appetite [Unknown]
  - Drug intolerance [Unknown]
